FAERS Safety Report 6289402-9 (Version None)
Quarter: 2009Q3

REPORT INFORMATION
  Report Type: 
  Country: None (occurrence: None)
  Receive Date: 20090730
  Receipt Date: 20090723
  Transmission Date: 20100115
  Serious: Yes (Life-Threatening)
  Sender: FDA-Public Use
  Company Number: IT-ELI_LILLY_AND_COMPANY-IT200903001195

PATIENT
  Sex: Male

DRUGS (2)
  1. HUMALOG [Suspect]
     Indication: TYPE 1 DIABETES MELLITUS
     Dosage: 3 U, DAILY (1/D)
     Route: 058
     Dates: start: 20080101
  2. LANTUS [Concomitant]
     Indication: DIABETES MELLITUS
     Dosage: 1 D/F, UNK
     Route: 058
     Dates: start: 20080101, end: 20090202

REACTIONS (5)
  - ASTHENIA [None]
  - HYPERHIDROSIS [None]
  - HYPOGLYCAEMIA [None]
  - PSYCHOMOTOR RETARDATION [None]
  - SOPOR [None]
